FAERS Safety Report 5321034-9 (Version None)
Quarter: 2007Q2

REPORT INFORMATION
  Report Type: 
  Country: None (occurrence: None)
  Receive Date: 20070215
  Receipt Date: 20060619
  Transmission Date: 20071010
  Serious: No
  Sender: FDA-Public Use
  Company Number: 200612245BWH

PATIENT
  Age: 78 Year
  Sex: Female
  Weight: 63.9572 kg

DRUGS (2)
  1. NEXAVAR [Suspect]
     Indication: METASTATIC RENAL CELL CARCINOMA
     Dosage: 400 MG, BID, ORAL
     Route: 048
     Dates: start: 20060323
  2. ZOMETA [Concomitant]

REACTIONS (8)
  - ANOREXIA [None]
  - BLOOD PRESSURE INCREASED [None]
  - DIARRHOEA [None]
  - EAR PAIN [None]
  - JOINT STIFFNESS [None]
  - NAUSEA [None]
  - RASH ERYTHEMATOUS [None]
  - VOMITING [None]
